FAERS Safety Report 18765860 (Version 1)
Quarter: 2021Q1

REPORT INFORMATION
  Report Type: Spontaneous
  Country: US (occurrence: US)
  Receive Date: 20210121
  Receipt Date: 20210121
  Transmission Date: 20210419
  Serious: Yes (Other)
  Sender: FDA-Public Use
  Company Number: US-TEVA-2021-US-1870217

PATIENT
  Sex: Female

DRUGS (3)
  1. AJOVY [Suspect]
     Active Substance: FREMANEZUMAB-VFRM
     Indication: MIGRAINE
     Route: 058
  2. METHOTREXATE. [Concomitant]
     Active Substance: METHOTREXATE
  3. AJOVY [Suspect]
     Active Substance: FREMANEZUMAB-VFRM

REACTIONS (1)
  - Rheumatoid arthritis [Unknown]
